FAERS Safety Report 8947059 (Version 1)
Quarter: 2012Q4

REPORT INFORMATION
  Report Type: Report from Study
  Country: US (occurrence: US)
  Receive Date: 20121205
  Receipt Date: 20121205
  Transmission Date: 20130627
  Serious: Yes (Other)
  Sender: FDA-Public Use
  Company Number: US-JNJFOC-20121113548

PATIENT
  Age: 60 Year
  Sex: Male
  Weight: 100.25 kg

DRUGS (13)
  1. REMICADE [Suspect]
     Indication: ANKYLOSING SPONDYLITIS
     Route: 042
     Dates: start: 20110622, end: 201205
  2. TYLENOL [Concomitant]
     Indication: PAIN
     Route: 048
  3. FOLIC ACID [Concomitant]
     Indication: PRODUCT USED FOR UNKNOWN INDICATION
     Route: 048
  4. VITAMIN B12 [Concomitant]
     Route: 048
  5. COREG [Concomitant]
     Route: 048
  6. LISINOPRIL [Concomitant]
     Route: 048
  7. ACETYL SALICYLIC ACID [Concomitant]
     Route: 048
  8. NEURONTIN [Concomitant]
     Dosage: at bed time
     Route: 048
  9. SULFASALAZINE [Concomitant]
     Route: 048
  10. SIMVASTATIN [Concomitant]
     Route: 048
  11. DICLOFENAC  SODIUM [Concomitant]
     Dosage: delayed release tablet
     Route: 048
  12. FLOMAX [Concomitant]
     Route: 048
  13. VITAMIN D3 [Concomitant]
     Route: 048

REACTIONS (2)
  - Road traffic accident [Recovered/Resolved]
  - Hip arthroplasty [Recovered/Resolved]
